FAERS Safety Report 9228807 (Version 1)
Quarter: 2013Q2

REPORT INFORMATION
  Report Type: Spontaneous
  Country: US (occurrence: US)
  Receive Date: 20130412
  Receipt Date: 20130412
  Transmission Date: 20140414
  Serious: No
  Sender: FDA-Public Use
  Company Number: US-BAYER-2013-046205

PATIENT
  Age: 19 Year
  Sex: Male
  Weight: 59 kg

DRUGS (1)
  1. ALEVE SMOOTH GELS [Suspect]
     Indication: ANALGESIC THERAPY
     Dosage: 5 DF, ONCE
     Route: 048
     Dates: start: 20130405

REACTIONS (2)
  - Incorrect dose administered [None]
  - Expired drug administered [None]
